FAERS Safety Report 7203973-7 (Version None)
Quarter: 2010Q4

REPORT INFORMATION
  Report Type: 
  Country: None (occurrence: None)
  Receive Date: 20101230
  Receipt Date: 20101220
  Transmission Date: 20110411
  Serious: Yes (Hospitalization)
  Sender: FDA-Public Use
  Company Number: AU-ELI_LILLY_AND_COMPANY-AU201012004860

PATIENT
  Age: 72 Year
  Sex: Female

DRUGS (3)
  1. PROZAC [Suspect]
  2. ALCOHOL [Concomitant]
     Indication: SLEEP DISORDER
     Dosage: 20 ML, EACH EVENING
  3. DIAZEPAM [Concomitant]
     Dosage: 0.5 D/F, OTHER
     Dates: start: 19960101

REACTIONS (2)
  - BLOOD PRESSURE INCREASED [None]
  - LOSS OF CONSCIOUSNESS [None]
